FAERS Safety Report 22059168 (Version 43)
Quarter: 2025Q2

REPORT INFORMATION
  Report Type: Report from Study
  Country: US (occurrence: US)
  Receive Date: 20230303
  Receipt Date: 20250626
  Transmission Date: 20250716
  Serious: Yes (Hospitalization, Other)
  Sender: TAKEDA
  Company Number: US-TAKEDA-2023TUS008345

PATIENT
  Age: 61 Year
  Sex: Female
  Weight: 107 kg

DRUGS (56)
  1. GLASSIA [Suspect]
     Active Substance: .ALPHA.1-PROTEINASE INHIBITOR HUMAN
     Indication: Alpha-1 antitrypsin deficiency
     Dosage: 60 MILLIGRAM/KILOGRAM, 1/WEEK
  2. GLASSIA [Suspect]
     Active Substance: .ALPHA.1-PROTEINASE INHIBITOR HUMAN
  3. GLASSIA [Suspect]
     Active Substance: .ALPHA.1-PROTEINASE INHIBITOR HUMAN
  4. GLASSIA [Suspect]
     Active Substance: .ALPHA.1-PROTEINASE INHIBITOR HUMAN
  5. GLASSIA [Suspect]
     Active Substance: .ALPHA.1-PROTEINASE INHIBITOR HUMAN
     Dosage: 60 MILLIGRAM/KILOGRAM, 1/WEEK
  6. ASPIRIN [Suspect]
     Active Substance: ASPIRIN
     Indication: Product used for unknown indication
  7. FASENRA [Suspect]
     Active Substance: BENRALIZUMAB
     Indication: Product used for unknown indication
  8. EPINEPHRINE [Concomitant]
     Active Substance: EPINEPHRINE
  9. DULOXETINE HYDROCHLORIDE [Concomitant]
     Active Substance: DULOXETINE HYDROCHLORIDE
  10. BUSPIRONE HCL [Concomitant]
     Active Substance: BUSPIRONE HYDROCHLORIDE
  11. AMLODIPINE BESYLATE [Concomitant]
     Active Substance: AMLODIPINE BESYLATE
  12. VITAMIN B [Concomitant]
     Active Substance: VITAMIN B
  13. FISH OIL [Concomitant]
     Active Substance: FISH OIL
  14. DUPIXENT [Concomitant]
     Active Substance: DUPILUMAB
  15. TIZANIDINE HYDROCHLORIDE [Concomitant]
     Active Substance: TIZANIDINE HYDROCHLORIDE
  16. TRAZODONE HCL [Concomitant]
     Active Substance: TRAZODONE HYDROCHLORIDE
  17. TRESIBA [Concomitant]
     Active Substance: INSULIN DEGLUDEC
  18. SODIUM CHLORIDE [Concomitant]
     Active Substance: SODIUM CHLORIDE
  19. PANTOPRAZOLE SODIUM [Concomitant]
     Active Substance: PANTOPRAZOLE SODIUM
  20. LOSARTAN POTASSIUM [Concomitant]
     Active Substance: LOSARTAN POTASSIUM
  21. TRELEGY ELLIPTA [Concomitant]
     Active Substance: FLUTICASONE FUROATE\UMECLIDINIUM BROMIDE\VILANTEROL TRIFENATATE
  22. LYRICA [Concomitant]
     Active Substance: PREGABALIN
  23. FENOFIBRATE [Concomitant]
     Active Substance: FENOFIBRATE
  24. PROPRANOLOL HYDROCHLORIDE [Concomitant]
     Active Substance: PROPRANOLOL HYDROCHLORIDE
     Dosage: UNK UNK, BID
  25. AIRSUPRA [Concomitant]
     Active Substance: ALBUTEROL SULFATE\BUDESONIDE
  26. HYDROCODONE BITARTRATE [Concomitant]
     Active Substance: HYDROCODONE BITARTRATE
  27. BENZONATATE [Concomitant]
     Active Substance: BENZONATATE
  28. ETODOLAC [Concomitant]
     Active Substance: ETODOLAC
  29. PREDNISONE [Concomitant]
     Active Substance: PREDNISONE
  30. NOVOLOG [Concomitant]
     Active Substance: INSULIN ASPART
  31. OXYGEN [Concomitant]
     Active Substance: OXYGEN
  32. CLONAZEPAM [Concomitant]
     Active Substance: CLONAZEPAM
  33. MONTELUKAST SODIUM [Concomitant]
     Active Substance: MONTELUKAST SODIUM
  34. DIPHENHYDRAMINE HYDROCHLORIDE [Concomitant]
     Active Substance: DIPHENHYDRAMINE HYDROCHLORIDE
  35. FARXIGA [Concomitant]
     Active Substance: DAPAGLIFLOZIN PROPANEDIOL
  36. FUROSEMIDE [Concomitant]
     Active Substance: FUROSEMIDE
  37. METFORMIN HYDROCHLORIDE [Concomitant]
     Active Substance: METFORMIN HYDROCHLORIDE
  38. METOPROLOL [Concomitant]
     Active Substance: METOPROLOL
  39. CEFDINIR [Concomitant]
     Active Substance: CEFDINIR
  40. OZEMPIC [Concomitant]
     Active Substance: SEMAGLUTIDE
  41. ZIPRASIDONE [Concomitant]
     Active Substance: ZIPRASIDONE
  42. MONTELUKAST [Concomitant]
     Active Substance: MONTELUKAST
  43. DULOXETINE [Concomitant]
     Active Substance: DULOXETINE
  44. IRON [Concomitant]
     Active Substance: IRON
  45. AMITRIPTYLINE HYDROCHLORIDE [Concomitant]
     Active Substance: AMITRIPTYLINE HYDROCHLORIDE
  46. METFORMIN [Concomitant]
     Active Substance: METFORMIN HYDROCHLORIDE
  47. METHOCARBAMOL [Concomitant]
     Active Substance: METHOCARBAMOL
  48. DICYCLOMINE [Concomitant]
     Active Substance: DICYCLOMINE HYDROCHLORIDE
  49. TIZANIDINE [Concomitant]
     Active Substance: TIZANIDINE
  50. METOPROLOL TARTRATE [Concomitant]
     Active Substance: METOPROLOL TARTRATE
  51. ATORVASTATIN CALCIUM [Concomitant]
     Active Substance: ATORVASTATIN CALCIUM
  52. DOXYCYCLINE HYCLATE [Concomitant]
     Active Substance: DOXYCYCLINE HYCLATE
  53. HYDROCODONE [Concomitant]
     Active Substance: HYDROCODONE
  54. JARDIANCE [Concomitant]
     Active Substance: EMPAGLIFLOZIN
  55. TEMAZEPAM [Concomitant]
     Active Substance: TEMAZEPAM
  56. CARVEDILOL [Concomitant]
     Active Substance: CARVEDILOL

REACTIONS (44)
  - Hypoxia [Unknown]
  - Hypercapnia [Unknown]
  - Sepsis [Unknown]
  - Oxygen saturation decreased [Recovering/Resolving]
  - Coma [Unknown]
  - Gait disturbance [Unknown]
  - Paralysis [Unknown]
  - Pneumonia [Unknown]
  - Rib fracture [Unknown]
  - Pain [Unknown]
  - Productive cough [Not Recovered/Not Resolved]
  - Oxygen consumption increased [Unknown]
  - Infection [Unknown]
  - Fall [Unknown]
  - Pain in extremity [Unknown]
  - Cystitis [Unknown]
  - Insurance issue [Recovering/Resolving]
  - Seasonal allergy [Unknown]
  - Illness [Unknown]
  - Hypoglycaemia [Recovered/Resolved]
  - Ligament sprain [Unknown]
  - Weight fluctuation [Unknown]
  - Skin infection [Unknown]
  - Blister [Unknown]
  - Scab [Unknown]
  - Product dose omission issue [Unknown]
  - Inappropriate schedule of product administration [Unknown]
  - Tremor [Unknown]
  - Drug hypersensitivity [Unknown]
  - Peripheral swelling [Unknown]
  - Contusion [Unknown]
  - Back disorder [Unknown]
  - Skin abrasion [Unknown]
  - Joint injury [Unknown]
  - Throat irritation [Unknown]
  - Respiratory tract infection [Not Recovered/Not Resolved]
  - Somnolence [Unknown]
  - Chest discomfort [Unknown]
  - Sinusitis [Unknown]
  - Bronchitis [Recovering/Resolving]
  - Back pain [Unknown]
  - Fatigue [Unknown]
  - Upper respiratory tract infection [Not Recovered/Not Resolved]
  - Cough [Unknown]

NARRATIVE: CASE EVENT DATE: 20240111
